FAERS Safety Report 7019219-9 (Version None)
Quarter: 2010Q3

REPORT INFORMATION
  Report Type: 
  Country: None (occurrence: None)
  Receive Date: 20100928
  Receipt Date: 20100914
  Transmission Date: 20110219
  Serious: Yes (Other)
  Sender: FDA-Public Use
  Company Number: US-ELI_LILLY_AND_COMPANY-US201008002276

PATIENT
  Age: 55 Year
  Sex: Female

DRUGS (3)
  1. EFFIENT [Suspect]
     Indication: ANTIPLATELET THERAPY
  2. ASPIRIN [Concomitant]
  3. ANGIOMAX [Concomitant]

REACTIONS (2)
  - CONTRAST MEDIA REACTION [None]
  - THROMBOCYTOPENIA [None]
